FAERS Safety Report 18032272 (Version 1)
Quarter: 2020Q3

REPORT INFORMATION
  Report Type: Spontaneous
  Country: US (occurrence: US)
  Receive Date: 20200716
  Receipt Date: 20200716
  Transmission Date: 20201103
  Serious: Yes (Other)
  Sender: FDA-Public Use
  Company Number: US-HIKMA PHARMACEUTICALS USA INC.-US-H14001-20-03307

PATIENT
  Age: 63 Year
  Sex: Female

DRUGS (9)
  1. CHLORPROMAZINE. [Suspect]
     Active Substance: CHLORPROMAZINE
     Indication: EYE LASER SURGERY
     Route: 056
  2. FENTANYL. [Concomitant]
     Active Substance: FENTANYL
     Indication: EYE LASER SURGERY
     Route: 065
  3. KETAMINE [Concomitant]
     Active Substance: KETAMINE
     Indication: EYE LASER SURGERY
     Route: 065
  4. XYLOCAINE [Suspect]
     Active Substance: LIDOCAINE HYDROCHLORIDE
     Indication: EYE LASER SURGERY
     Route: 056
  5. MIDAZOLAM. [Concomitant]
     Active Substance: MIDAZOLAM
     Indication: EYE LASER SURGERY
  6. BUPIVACAINE. [Concomitant]
     Active Substance: BUPIVACAINE
     Route: 056
  7. HYALURONIDASE [Concomitant]
     Active Substance: HYALURONIDASE
     Route: 056
  8. XYLOCAINE [Suspect]
     Active Substance: LIDOCAINE HYDROCHLORIDE
     Route: 056
  9. MIDAZOLAM. [Concomitant]
     Active Substance: MIDAZOLAM
     Indication: ANXIETY
     Route: 065

REACTIONS (4)
  - Sedation [Recovered/Resolved]
  - Blood pressure decreased [Recovered/Resolved]
  - Local anaesthetic systemic toxicity [Recovered/Resolved]
  - Product use issue [Recovered/Resolved]
